FAERS Safety Report 9236884 (Version 1)
Quarter: 2013Q2

REPORT INFORMATION
  Report Type: Spontaneous
  Country: US (occurrence: US)
  Receive Date: 20130417
  Receipt Date: 20130417
  Transmission Date: 20140414
  Serious: Yes (Other)
  Sender: FDA-Public Use
  Company Number: US-PFIZER INC-2013116988

PATIENT
  Age: 75 Year
  Sex: Female
  Weight: 102.4 kg

DRUGS (2)
  1. REVATIO [Suspect]
     Indication: HYPERTENSION
     Dosage: UNK
     Route: 048
  2. REVATIO [Suspect]
     Dosage: 40 MG (TWO TABLETS OF 20MG), 3X/DAY
     Route: 048

REACTIONS (6)
  - Cerebrovascular accident [Unknown]
  - Gait disturbance [Unknown]
  - Activities of daily living impaired [Unknown]
  - Mutism [Unknown]
  - Off label use [Unknown]
  - Incorrect dose administered [Unknown]
